FAERS Safety Report 11079926 (Version 2)
Quarter: 2015Q3

REPORT INFORMATION
  Report Type: Spontaneous
  Country: JP (occurrence: JP)
  Receive Date: 20150428
  Receipt Date: 20150805
  Transmission Date: 20151125
  Serious: Yes (Hospitalization)
  Sender: FDA-Public Use
  Company Number: JP-ROCHE-1548680

PATIENT
  Sex: Female
  Weight: 28 kg

DRUGS (6)
  1. BONVIVA [Suspect]
     Active Substance: IBANDRONATE SODIUM
     Indication: OSTEOPOROSIS
     Route: 042
     Dates: start: 20150214, end: 20150214
  2. LASIX [Suspect]
     Active Substance: FUROSEMIDE
     Indication: CARDIAC FAILURE CONGESTIVE
     Route: 048
     Dates: start: 20150210, end: 20150219
  3. RENIVACE [Suspect]
     Active Substance: ENALAPRIL
     Indication: HYPERTENSION
     Route: 048
     Dates: start: 20150207, end: 20150219
  4. TAKEPRON [Concomitant]
     Active Substance: LANSOPRAZOLE
     Indication: PROPHYLAXIS AGAINST GASTROINTESTINAL ULCER
     Route: 048
     Dates: start: 20150207
  5. ALFAROL [Concomitant]
     Active Substance: ALFACALCIDOL
     Indication: OSTEOPOROSIS
     Route: 048
     Dates: start: 20150207
  6. AMLODIN [Concomitant]
     Active Substance: AMLODIPINE BESYLATE
     Indication: HYPERTENSION
     Route: 048
     Dates: end: 20150219

REACTIONS (7)
  - Rhabdomyolysis [Recovered/Resolved]
  - Renal disorder [Recovered/Resolved]
  - Metabolic acidosis [Recovered/Resolved]
  - Colitis ischaemic [Recovered/Resolved]
  - Hepatic function abnormal [Recovered/Resolved]
  - Dehydration [Recovered/Resolved]
  - Hypovolaemic shock [Recovered/Resolved]
